FAERS Safety Report 7052031-3 (Version None)
Quarter: 2010Q4

REPORT INFORMATION
  Report Type: 
  Country: None (occurrence: None)
  Receive Date: 20101019
  Receipt Date: 20101013
  Transmission Date: 20110411
  Serious: Yes (Disabling)
  Sender: FDA-Public Use
  Company Number: US-ALLERGAN-1013197US

PATIENT
  Age: 46 Year
  Sex: Male

DRUGS (2)
  1. BOTOX [Suspect]
     Indication: BACK PAIN
     Dosage: 200 UNITS, SINGLE
     Dates: start: 20081011, end: 20081011
  2. BOTOX [Suspect]
     Indication: MUSCLE SPASMS

REACTIONS (3)
  - ASTHENIA [None]
  - BOTULISM [None]
  - GUILLAIN-BARRE SYNDROME [None]
